FAERS Safety Report 12316374 (Version 1)
Quarter: 2016Q2

REPORT INFORMATION
  Report Type: Spontaneous
  Country: US (occurrence: US)
  Receive Date: 20160429
  Receipt Date: 20160429
  Transmission Date: 20160815
  Serious: Yes (Death, Hospitalization)
  Sender: FDA-Public Use
  Company Number: US-ASTRAZENECA-2016SE44707

PATIENT
  Age: 73 Year
  Sex: Female

DRUGS (6)
  1. MEROPENEM. [Suspect]
     Active Substance: MEROPENEM
     Indication: ESCHERICHIA INFECTION
     Route: 042
  2. COLISTIN [Concomitant]
     Active Substance: COLISTIN
     Indication: ANTIBIOTIC THERAPY
  3. FLUCONAZOLE. [Concomitant]
     Active Substance: FLUCONAZOLE
     Indication: CANDIDA INFECTION
  4. IMIPENEM [Suspect]
     Active Substance: IMIPENEM
     Indication: ESCHERICHIA INFECTION
     Route: 065
  5. DORIPENEM [Concomitant]
     Active Substance: DORIPENEM
     Indication: ESCHERICHIA INFECTION
     Route: 065
  6. CASPOFUNGIN [Concomitant]
     Active Substance: CASPOFUNGIN
     Indication: CANDIDA INFECTION

REACTIONS (6)
  - Drug resistance [Unknown]
  - Hepatic infarction [Unknown]
  - Renal infarct [Unknown]
  - Sepsis [Fatal]
  - Shock [Unknown]
  - Splenic infarction [Unknown]
